FAERS Safety Report 4869183-3 (Version None)
Quarter: 2005Q4

REPORT INFORMATION
  Report Type: 
  Country: None (occurrence: None)
  Receive Date: 20051230
  Receipt Date: 20040414
  Transmission Date: 20060501
  Serious: Yes (Disabling, Other)
  Sender: FDA-Public Use
  Company Number: PHBS2004JP05112

PATIENT
  Age: 59 Year
  Sex: Female

DRUGS (7)
  1. STEROIDS NOS [Suspect]
     Dates: start: 20030912
  2. STEROIDS NOS [Suspect]
     Dosage: PULSE THERAPY
  3. STEROIDS NOS [Suspect]
     Dosage: 60 MG/D
  4. NEORAL [Suspect]
     Indication: INTERSTITIAL LUNG DISEASE
     Dosage: 50 MG/D
     Route: 048
     Dates: start: 20031020, end: 20031026
  5. NEORAL [Suspect]
     Dosage: 100 MG/D
     Route: 048
     Dates: start: 20031027, end: 20031222
  6. NEORAL [Suspect]
     Dosage: 50 MG/D
     Route: 048
     Dates: start: 20031223, end: 20031228
  7. TOFRANIL [Concomitant]
     Dosage: 10 MG/D

REACTIONS (6)
  - BLINDNESS [None]
  - BLOOD PRESSURE INCREASED [None]
  - DEPRESSION [None]
  - HERPES SIMPLEX [None]
  - HERPES ZOSTER [None]
  - NECROTISING RETINITIS [None]
